FAERS Safety Report 8160508-2 (Version None)
Quarter: 2012Q1

REPORT INFORMATION
  Report Type: 
  Country: None (occurrence: None)
  Receive Date: 20120223
  Receipt Date: 20120221
  Transmission Date: 20120608
  Serious: Yes (Life-Threatening, Hospitalization)
  Sender: FDA-Public Use
  Company Number: CA-B.I. PHARMACEUTICALS,INC./RIDGEFIELD-2012-CN-00384CN

PATIENT
  Age: 87 Year
  Sex: Female
  Weight: 60 kg

DRUGS (8)
  1. DIOVAN [Concomitant]
     Route: 065
  2. HEPARIN SODIUM INJECTION [Concomitant]
     Route: 042
  3. NORVASC [Concomitant]
     Route: 065
  4. FOSAVANCE [Concomitant]
     Route: 065
  5. CALCIUM [Concomitant]
     Route: 065
  6. LOPRESSOR [Concomitant]
     Route: 065
  7. PREVACID [Concomitant]
     Route: 065
  8. PRADAXA [Suspect]
     Dosage: 220 MG
     Route: 048

REACTIONS (1)
  - PULMONARY EMBOLISM [None]
